FAERS Safety Report 8791921 (Version 2)
Quarter: 2012Q4

REPORT INFORMATION
  Report Type: 
  Country: NL (occurrence: NL)
  Receive Date: 20120918
  Receipt Date: 20120920
  Transmission Date: 20130627
  Serious: Yes (Hospitalization)
  Sender: FDA-Public Use
  Company Number: NL-PFIZER INC-2012226872

PATIENT
  Age: 70 Year
  Sex: Female
  Weight: 69 kg

DRUGS (11)
  1. GENOTROPIN [Suspect]
     Dosage: 0.4 mg, 1x/day, 7inj/wk
     Route: 058
     Dates: start: 19990623
  2. TEMAZEPAM [Concomitant]
     Indication: SLEEP DISORDER
     Dosage: UNK
  3. METFORMIN [Concomitant]
     Indication: DIABETES MELLITUS
     Dosage: UNK
     Dates: start: 19960701
  4. FERROSI FUMARAS [Concomitant]
     Indication: MINERAL DEFICIENCY
     Dosage: UNK
     Dates: start: 19990421
  5. SIMVASTATIN [Concomitant]
     Indication: HYPERCHOLESTEROLAEMIA
     Dosage: UNK
     Dates: start: 19970701
  6. LEVOTHYROXINE [Concomitant]
     Indication: BLOOD THYROID STIMULATING HORMONE DECREASED
     Dosage: UNK
     Dates: start: 19990629
  7. LEVOTHYROXINE [Concomitant]
     Indication: PRIMARY HYPOTHYROIDISM
  8. ENALAPRIL [Concomitant]
     Dosage: UNK
     Dates: start: 20040115
  9. GLIMEPIRIDE [Concomitant]
     Indication: DIABETES MELLITUS
     Dosage: UNK
     Dates: start: 20040116
  10. AMARYL [Concomitant]
     Indication: DIABETES MELLITUS
     Dosage: UNK
     Dates: start: 19980615
  11. HYDROCORTISONE [Concomitant]
     Indication: BLOOD CORTICOTROPHIN DECREASED
     Dosage: UNK
     Dates: start: 20011012

REACTIONS (1)
  - Surgery [Unknown]
